FAERS Safety Report 20381566 (Version 1)
Quarter: 2022Q1

REPORT INFORMATION
  Report Type: Spontaneous
  Country: BR (occurrence: BR)
  Receive Date: 20220127
  Receipt Date: 20220127
  Transmission Date: 20220423
  Serious: Yes (Other)
  Sender: FDA-Public Use
  Company Number: BR-GLAXOSMITHKLINE-BR2022AMR011942

PATIENT
  Age: 73 Year
  Sex: Female

DRUGS (1)
  1. ALBUTEROL [Suspect]
     Active Substance: ALBUTEROL
     Indication: Asthma
     Dosage: 4 MG, BID, 4MG BOX WITH 20 TABLETS

REACTIONS (4)
  - Respiratory arrest [Unknown]
  - Anxiety [Unknown]
  - Product use issue [Unknown]
  - Product dose omission issue [Unknown]
